FAERS Safety Report 10398989 (Version 2)
Quarter: 2014Q3

REPORT INFORMATION
  Report Type: Report from Study
  Country: DE (occurrence: DE)
  Receive Date: 20140821
  Receipt Date: 20140821
  Transmission Date: 20150326
  Serious: Yes (Hospitalization)
  Sender: FDA-Public Use
  Company Number: DE-PFIZER INC-HQWYE103111SEP07

PATIENT
  Age: 66 Year
  Sex: Male
  Weight: 73 kg

DRUGS (6)
  1. RAPAMUNE [Concomitant]
     Active Substance: SIROLIMUS
     Indication: PROPHYLAXIS AGAINST TRANSPLANT REJECTION
     Dosage: 2 MG, 1X/DAY
     Route: 048
     Dates: start: 20070925, end: 2007
  2. PROGRAF [Suspect]
     Active Substance: TACROLIMUS\TACROLIMUS ANHYDROUS
     Indication: PROPHYLAXIS AGAINST TRANSPLANT REJECTION
     Dosage: 1 MG, 2X/DAY
     Route: 048
     Dates: start: 20070207, end: 20070912
  3. RAPAMUNE [Concomitant]
     Active Substance: SIROLIMUS
     Dosage: 2 MG, 1X/DAY
     Route: 048
     Dates: start: 2007
  4. CELLCEPT [Suspect]
     Active Substance: MYCOPHENOLATE MOFETIL\MYCOPHENOLATE MOFETIL HYDROCHLORIDE
     Indication: PROPHYLAXIS AGAINST TRANSPLANT REJECTION
     Dosage: 1 G, 2X/DAY
     Route: 048
     Dates: start: 20070207
  5. RAPAMUNE [Concomitant]
     Active Substance: SIROLIMUS
     Dosage: 4 MG, 1X/DAY
     Route: 048
     Dates: start: 2007, end: 2007
  6. PROGRAF [Suspect]
     Active Substance: TACROLIMUS\TACROLIMUS ANHYDROUS
     Dosage: LOW DOSE
     Route: 048
     Dates: start: 20070918, end: 20070924

REACTIONS (2)
  - Renal failure [Recovered/Resolved]
  - Nephrogenic anaemia [Recovered/Resolved]

NARRATIVE: CASE EVENT DATE: 20070907
